FAERS Safety Report 11457785 (Version 1)
Quarter: 2015Q3

REPORT INFORMATION
  Report Type: Spontaneous
  Country: US (occurrence: None)
  Receive Date: 20150904
  Receipt Date: 20150904
  Transmission Date: 20151125
  Serious: Yes (Other)
  Sender: FDA-Public Use
  Company Number: US-MDT-ADR-2015-01701

PATIENT

DRUGS (1)
  1. BACLOFEN INTRATHECAL 2000MCG/ML [Suspect]
     Active Substance: BACLOFEN

REACTIONS (1)
  - Incorrect route of drug administration [None]
